FAERS Safety Report 8387355-0 (Version None)
Quarter: 2012Q2

REPORT INFORMATION
  Report Type: 
  Country: None (occurrence: None)
  Receive Date: 20120525
  Receipt Date: 20120514
  Transmission Date: 20120825
  Serious: Yes (Death, Hospitalization)
  Sender: FDA-Public Use
  Company Number: US-ROCHE-663651

PATIENT
  Sex: Female
  Weight: 47.6 kg

DRUGS (6)
  1. AMLODIPINE BESYLATE [Suspect]
     Indication: PRODUCT USED FOR UNKNOWN INDICATION
     Dosage: 1 TABLET, QD, DRUG NAME REPORTED AS: CADUET
     Route: 065
  2. LEVOTHYROXINE SODIUM [Suspect]
     Indication: PRODUCT USED FOR UNKNOWN INDICATION
     Dosage: 75 MCG, QD
     Route: 065
  3. ASPIRIN [Suspect]
     Indication: PRODUCT USED FOR UNKNOWN INDICATION
     Dosage: 81 MG, QD
     Route: 065
  4. PACLITAXEL [Suspect]
     Indication: BLADDER CANCER
     Dosage: 50 MG/M2 OVER 1 HOUR ON DAYS 1,8,15,22,29,36,43
     Route: 042
  5. METOPROLOL SUCCINATE [Suspect]
     Indication: PRODUCT USED FOR UNKNOWN INDICATION
     Dosage: 25 MCG, QD. DRUG NAME REPORTED AS: TOPROL XL.
     Route: 065
  6. HERCEPTIN [Suspect]
     Indication: BLADDER CANCER

REACTIONS (1)
  - SMALL INTESTINAL PERFORATION [None]
